FAERS Safety Report 8956896 (Version 2)
Quarter: 2012Q4

REPORT INFORMATION
  Report Type: 
  Country: JP (occurrence: JP)
  Receive Date: 20121210
  Receipt Date: 20121220
  Transmission Date: 20130627
  Serious: Yes (Death)
  Sender: FDA-Public Use
  Company Number: JP-009507513-1212JPN002854

PATIENT
  Age: 74 Year
  Sex: Male

DRUGS (10)
  1. GLACTIV [Suspect]
     Indication: TYPE 2 DIABETES MELLITUS
     Dosage: 50 mg, qd
     Route: 048
     Dates: start: 20101008, end: 20120611
  2. GLIMEPIRIDE [Concomitant]
     Dosage: UNK
     Dates: start: 20110326, end: 20120611
  3. METFORMIN HYDROCHLORIDE [Concomitant]
     Dosage: UNK
     Dates: start: 20110901, end: 20120601
  4. PIOGLITAZONE HYDROCHLORIDE [Concomitant]
     Dosage: UNK
     Dates: start: 20101008, end: 20120611
  5. PURSENNID (SENNOSIDES) [Concomitant]
     Dosage: UNK
     Dates: end: 20120611
  6. HOKUNALIN [Concomitant]
     Dosage: UNK
     Dates: end: 20120611
  7. LENDORMIN [Concomitant]
     Dosage: UNK
     Dates: end: 20120611
  8. DUROTEP [Concomitant]
  9. PARIET [Concomitant]
     Dosage: UNK
     Dates: end: 20120611
  10. HARNAL [Concomitant]
     Dosage: UNK
     Dates: end: 20120611

REACTIONS (1)
  - Lung neoplasm malignant [Fatal]
